FAERS Safety Report 9644143 (Version 2)
Quarter: 2013Q4

REPORT INFORMATION
  Report Type: Report from Study
  Country: ES (occurrence: ES)
  Receive Date: 20131024
  Receipt Date: 20131030
  Transmission Date: 20140711
  Serious: Yes (Hospitalization)
  Sender: FDA-Public Use
  Company Number: ES-PFIZER INC-2013301543

PATIENT
  Age: 77 Year
  Sex: Male

DRUGS (4)
  1. ALDACTONE [Suspect]
     Indication: CARDIAC FAILURE
     Dosage: 25 MG, 1X/DAY
     Route: 048
     Dates: start: 2011, end: 20120713
  2. ENALAPRIL [Interacting]
     Indication: CARDIAC FAILURE
     Dosage: 5 MG, 1X/DAY
     Route: 048
     Dates: start: 2011, end: 20120713
  3. SEGURIL [Interacting]
     Indication: CARDIAC FAILURE
     Dosage: 40 MG, 1X/DAY
     Route: 048
     Dates: start: 2011
  4. ADIRO [Concomitant]
     Indication: PROPHYLAXIS
     Dosage: 300 MG, 1X/DAY
     Route: 048
     Dates: start: 2011, end: 20120713

REACTIONS (3)
  - Drug interaction [Recovered/Resolved]
  - Renal failure acute [Recovered/Resolved]
  - Hyperkalaemia [Recovered/Resolved]
